FAERS Safety Report 8934037 (Version 4)
Quarter: 2014Q2

REPORT INFORMATION
  Report Type: Spontaneous
  Country: FR (occurrence: FR)
  Receive Date: 20121129
  Receipt Date: 20140609
  Transmission Date: 20141212
  Serious: Yes (Other)
  Sender: FDA-Public Use
  Company Number: FR-NOVOPROD-364652

PATIENT
  Sex: Male

DRUGS (2)
  1. NORDITROPIN NORDIFLEX COUNTERFEIT [Suspect]
     Indication: PRODUCT USED FOR UNKNOWN INDICATION
     Dosage: UNK
     Route: 065
  2. NORDITROPIN [Suspect]
     Indication: PRODUCT USED FOR UNKNOWN INDICATION
     Dosage: NOT A SUSPECT PRODUCT

REACTIONS (5)
  - Product counterfeit [Unknown]
  - Suicide attempt [Unknown]
  - Depression [Unknown]
  - Counterfeit drug administered [None]
  - Intentional product misuse [None]
